FAERS Safety Report 14199781 (Version 3)
Quarter: 2017Q4

REPORT INFORMATION
  Report Type: Other
  Country: CA (occurrence: CA)
  Receive Date: 20171117
  Receipt Date: 20171229
  Transmission Date: 20180321
  Serious: Yes (Death, Hospitalization, Disabling, Other)
  Sender: FDA-Public Use
  Company Number: CA-APOTEX-2017AP021086

PATIENT
  Sex: Male
  Weight: 92 kg

DRUGS (21)
  1. APO-DOXY [Suspect]
     Active Substance: DOXYCYCLINE HYCLATE
     Indication: OSTEOMYELITIS
  2. APO-LINEZOLID [Suspect]
     Active Substance: LINEZOLID
     Indication: PARASPINAL ABSCESS
     Dosage: 600 MG, BID
     Route: 048
  3. CEFTAROLINE FOSAMIL ACETATE [Suspect]
     Active Substance: CEFTAROLINE FOSAMIL
     Indication: OSTEOMYELITIS
  4. TIGECYCLINE. [Suspect]
     Active Substance: TIGECYCLINE
     Indication: OSTEOMYELITIS
     Dosage: 50 MG, BID
     Route: 042
  5. RIFAMPIN. [Suspect]
     Active Substance: RIFAMPIN
     Indication: PARASPINAL ABSCESS
     Dosage: 300 MG, BID
     Route: 048
  6. APO-LINEZOLID [Suspect]
     Active Substance: LINEZOLID
     Indication: OSTEOMYELITIS
  7. CUBICIN [Suspect]
     Active Substance: DAPTOMYCIN
     Indication: PARASPINAL ABSCESS
     Dosage: 900 MG, QD
     Route: 042
  8. VAL VANCOMYCIN [Suspect]
     Active Substance: VANCOMYCIN HYDROCHLORIDE
     Indication: PARASPINAL ABSCESS
     Dosage: UNK
     Route: 065
  9. APO-DOXY [Suspect]
     Active Substance: DOXYCYCLINE HYCLATE
     Indication: PARASPINAL ABSCESS
     Dosage: 100 MG, BID
     Route: 048
  10. CUBICIN [Suspect]
     Active Substance: DAPTOMYCIN
     Indication: INTERVERTEBRAL DISCITIS
  11. VAL VANCOMYCIN [Suspect]
     Active Substance: VANCOMYCIN HYDROCHLORIDE
     Indication: INTERVERTEBRAL DISCITIS
  12. CEFTAROLINE FOSAMIL ACETATE [Suspect]
     Active Substance: CEFTAROLINE FOSAMIL
     Indication: PARASPINAL ABSCESS
     Dosage: 300 MG, BID
     Route: 042
  13. APO-DOXY [Suspect]
     Active Substance: DOXYCYCLINE HYCLATE
     Indication: INTERVERTEBRAL DISCITIS
  14. APO-LINEZOLID [Suspect]
     Active Substance: LINEZOLID
     Indication: INTERVERTEBRAL DISCITIS
  15. TIGECYCLINE. [Suspect]
     Active Substance: TIGECYCLINE
     Indication: PARASPINAL ABSCESS
     Dosage: 100 MG, QD
     Route: 042
  16. TIGECYCLINE. [Suspect]
     Active Substance: TIGECYCLINE
     Indication: INTERVERTEBRAL DISCITIS
  17. CUBICIN [Suspect]
     Active Substance: DAPTOMYCIN
     Indication: OSTEOMYELITIS
     Dosage: 700 MG, QD
     Route: 042
  18. RIFAMPIN. [Suspect]
     Active Substance: RIFAMPIN
     Indication: OSTEOMYELITIS
  19. RIFAMPIN. [Suspect]
     Active Substance: RIFAMPIN
     Indication: INTERVERTEBRAL DISCITIS
  20. CEFTAROLINE FOSAMIL ACETATE [Suspect]
     Active Substance: CEFTAROLINE FOSAMIL
     Indication: INTERVERTEBRAL DISCITIS
  21. VAL VANCOMYCIN [Suspect]
     Active Substance: VANCOMYCIN HYDROCHLORIDE
     Indication: OSTEOMYELITIS

REACTIONS (6)
  - Thrombocytopenia [Fatal]
  - Transaminases increased [Fatal]
  - Staphylococcal infection [Fatal]
  - Treatment failure [Fatal]
  - Hypophagia [Fatal]
  - General physical health deterioration [Fatal]
